FAERS Safety Report 4466726-9 (Version None)
Quarter: 2004Q3

REPORT INFORMATION
  Report Type: 
  Country: None (occurrence: None)
  Receive Date: 20040930
  Receipt Date: 20040917
  Transmission Date: 20050211
  Serious: Yes (Life-Threatening, Hospitalization)
  Sender: FDA-Public Use
  Company Number: 0002809

PATIENT
  Age: 6 Year
  Sex: Male
  Weight: 24.1 kg

DRUGS (5)
  1. INTRALIPID 20% [Suspect]
     Indication: MALABSORPTION
     Dosage: 220 MG/ - DAILY / INTRAVENOUS IN
     Route: 042
     Dates: start: 20040422, end: 20040915
  2. DEXTROSE [Concomitant]
  3. TRAVASOL 10% [Concomitant]
  4. SODIUM CHLORIDE 0.9% [Concomitant]
  5. K ACETATE [Concomitant]

REACTIONS (4)
  - DISSEMINATED INTRAVASCULAR COAGULATION [None]
  - HAEMORRHAGE [None]
  - LIVER FUNCTION TEST ABNORMAL [None]
  - VIRAL INFECTION [None]
